FAERS Safety Report 13469771 (Version 13)
Quarter: 2018Q1

REPORT INFORMATION
  Report Type: Spontaneous
  Country: US (occurrence: US)
  Receive Date: 20170422
  Receipt Date: 20180211
  Transmission Date: 20180508
  Serious: Yes (Hospitalization, Other)
  Sender: FDA-Public Use
  Company Number: PHEH2017US011849

PATIENT
  Sex: Male

DRUGS (2)
  1. LENVIMA [Suspect]
     Active Substance: LENVATINIB
     Indication: RENAL CANCER
     Dosage: 10 MG, QD
     Route: 048
     Dates: start: 20170412
  2. AFINITOR [Suspect]
     Active Substance: EVEROLIMUS
     Indication: PRODUCT USED FOR UNKNOWN INDICATION
     Dosage: UNK
     Route: 065

REACTIONS (28)
  - Hypotension [Unknown]
  - Constipation [Unknown]
  - Lung neoplasm [Unknown]
  - Pain in extremity [Unknown]
  - Skin exfoliation [Unknown]
  - Productive cough [Recovering/Resolving]
  - Cough [Unknown]
  - Malaise [Unknown]
  - Respiratory tract infection [Unknown]
  - Dysphonia [Recovering/Resolving]
  - Gout [Recovered/Resolved]
  - Decreased appetite [Unknown]
  - Diarrhoea [Unknown]
  - Epistaxis [Recovering/Resolving]
  - Hypertension [Recovered/Resolved]
  - Abdominal pain [Unknown]
  - Dizziness [Unknown]
  - Nausea [Unknown]
  - Headache [Unknown]
  - Blood thyroid stimulating hormone increased [Unknown]
  - Musculoskeletal pain [Unknown]
  - Fatigue [Unknown]
  - Insomnia [Unknown]
  - Eructation [Unknown]
  - Oropharyngeal pain [Unknown]
  - Blood pressure increased [Unknown]
  - Weight decreased [Unknown]
  - Volvulus [Recovering/Resolving]
